FAERS Safety Report 6146786 (Version 3)
Quarter: 2012Q4

REPORT INFORMATION
  Report Type: 
  Country: GB (occurrence: GB)
  Receive Date: 20061013
  Receipt Date: 20121210
  Transmission Date: 20130627
  Serious: Yes (Hospitalization, Other)
  Sender: FDA-Public Use
  Company Number: GB-JNJFOC-20061002283

PATIENT
  Age: 13 Month
  Sex: Male
  Weight: 12 kg

DRUGS (15)
  1. IBUPROFEN [Suspect]
     Indication: PYREXIA
     Route: 048
     Dates: start: 20060727, end: 20060801
  2. SALBUTAMOL [Concomitant]
  3. CLAVULIN [Concomitant]
     Route: 042
     Dates: start: 20060730, end: 20060730
  4. CEFTRIAXONE [Concomitant]
     Route: 042
     Dates: start: 20060801, end: 20060808
  5. PARACETAMOL [Concomitant]
     Indication: PYREXIA
     Route: 048
     Dates: start: 20060727, end: 20060802
  6. BECLOMETHASONE [Concomitant]
     Indication: PRODUCT USED FOR UNKNOWN INDICATION
     Route: 055
  7. BENZYLPENICILLIN [Concomitant]
     Indication: PRODUCT USED FOR UNKNOWN INDICATION
     Route: 042
     Dates: start: 20060727, end: 20060729
  8. COAMOXICLAV [Concomitant]
     Indication: PRODUCT USED FOR UNKNOWN INDICATION
     Route: 042
     Dates: start: 20060730, end: 20060730
  9. DIFFLAM [Concomitant]
     Indication: OROPHARYNGEAL PAIN
     Route: 048
     Dates: start: 20060730, end: 20060801
  10. FLUCLOXACILLIN [Concomitant]
     Indication: PRODUCT USED FOR UNKNOWN INDICATION
     Route: 042
     Dates: start: 20060727, end: 20060729
  11. NYSTATIN [Concomitant]
     Indication: PRODUCT USED FOR UNKNOWN INDICATION
     Route: 048
     Dates: start: 20060731, end: 20060801
  12. SALBUTAMOL [Concomitant]
     Indication: PRODUCT USED FOR UNKNOWN INDICATION
  13. ACETYLSALICYLIC ACID [Concomitant]
     Dates: start: 20060804
  14. BENZYDAMINE HYDROCHLORIDE [Concomitant]
     Indication: OROPHARYNGEAL PAIN
     Route: 048
     Dates: start: 20060730, end: 20060801
  15. CHLORPHENAMINE MALEATE [Concomitant]
     Route: 048
     Dates: start: 20060804, end: 20060806

REACTIONS (6)
  - Renal impairment [Recovered/Resolved]
  - Dehydration [Recovering/Resolving]
  - Oedema [Recovering/Resolving]
  - Proteinuria [Recovering/Resolving]
  - Pyrexia [Recovering/Resolving]
  - Feeding disorder [Recovering/Resolving]
